FAERS Safety Report 8357720-6 (Version None)
Quarter: 2012Q2

REPORT INFORMATION
  Report Type: 
  Country: None (occurrence: None)
  Receive Date: 20120511
  Receipt Date: 20120504
  Transmission Date: 20120825
  Serious: Yes (Other)
  Sender: FDA-Public Use
  Company Number: 2012SP010289

PATIENT
  Age: 30 Year
  Sex: Male

DRUGS (7)
  1. DEROXAT (PARAXETINE HYDROCHLORIDE) [Suspect]
     Indication: DEPRESSION
     Dosage: 1 DF;QD;PO
     Route: 048
     Dates: start: 20120101, end: 20120110
  2. TRIMEPRAZINE TARTRATE [Suspect]
     Indication: DEPRESSION
     Dosage: 20 GTT;QD;PO
     Route: 048
     Dates: start: 20120101, end: 20120110
  3. DESLORATADINE [Suspect]
     Indication: PRODUCT USED FOR UNKNOWN INDICATION
     Dosage: 5 MG; QD; PO
     Route: 048
  4. NASONEX [Suspect]
     Indication: PRODUCT USED FOR UNKNOWN INDICATION
     Dosage: 5 MCG;;NAS
     Route: 045
  5. PRAZEPAM [Suspect]
     Indication: DEPRESSION
     Dosage: 1 DF;TID;PO, PO
     Route: 048
     Dates: start: 20120114
  6. PRAZEPAM [Suspect]
     Indication: DEPRESSION
     Dosage: 1 DF;TID;PO, PO
     Route: 048
     Dates: start: 20120101, end: 20120110
  7. TESTOSTERONE [Concomitant]

REACTIONS (2)
  - DYSURIA [None]
  - HICCUPS [None]
